FAERS Safety Report 4952375-2 (Version None)
Quarter: 2006Q1

REPORT INFORMATION
  Report Type: 
  Country: None (occurrence: None)
  Receive Date: 20060320
  Receipt Date: 20060310
  Transmission Date: 20060701
  Serious: Yes (Hospitalization)
  Sender: FDA-Public Use
  Company Number: 216663

PATIENT
  Age: 68 Year
  Sex: Female
  Weight: 63.5 kg

DRUGS (5)
  1. RAPTIVA [Suspect]
     Indication: PSORIASIS
     Dosage: SEE IMAGE
     Route: 058
     Dates: start: 20050713, end: 20050713
  2. RAPTIVA [Suspect]
     Indication: PSORIASIS
     Dosage: SEE IMAGE
     Route: 058
     Dates: start: 20050720, end: 20050720
  3. SYNTHROID [Concomitant]
  4. DOVONEX CREAM (CALCIPOTRIENE) [Concomitant]
  5. TEMOVATE CREAM 0.05% (CLOBETASOL PROPIONATE) [Concomitant]

REACTIONS (11)
  - BLOOD GLUCOSE INCREASED [None]
  - CEREBROVASCULAR DISORDER [None]
  - CRANIAL NERVE DISORDER [None]
  - DIPLOPIA [None]
  - EYELID PTOSIS [None]
  - HYPOTHYROIDISM [None]
  - NERVE COMPRESSION [None]
  - NEURITIS [None]
  - OCULAR MYASTHENIA [None]
  - THERAPY NON-RESPONDER [None]
  - VISION BLURRED [None]
